FAERS Safety Report 23427127 (Version 3)
Quarter: 2024Q2

REPORT INFORMATION
  Report Type: Spontaneous
  Country: GB (occurrence: GB)
  Receive Date: 20240122
  Receipt Date: 20240423
  Transmission Date: 20240716
  Serious: Yes (Death)
  Sender: FDA-Public Use
  Company Number: None

PATIENT
  Age: 25 Year
  Sex: Male
  Weight: 83 kg

DRUGS (38)
  1. OCRELIZUMAB [Suspect]
     Active Substance: OCRELIZUMAB
     Indication: Relapsing-remitting multiple sclerosis
     Dosage: 600MG EVERY 6 MONTHS ; ;
     Route: 065
     Dates: start: 20220420, end: 202311
  2. OCRELIZUMAB [Suspect]
     Active Substance: OCRELIZUMAB
     Route: 042
     Dates: start: 20230821
  3. OCRELIZUMAB [Suspect]
     Active Substance: OCRELIZUMAB
     Route: 042
     Dates: start: 20230209
  4. AMITRIPTYLINE [Concomitant]
     Active Substance: AMITRIPTYLINE
  5. ASPIRIN [Concomitant]
     Active Substance: ASPIRIN
     Indication: Adverse drug reaction
  6. DOMPERIDONE [Concomitant]
     Active Substance: DOMPERIDONE
  7. IBUPROFEN [Concomitant]
     Active Substance: IBUPROFEN
  8. LANSOPRAZOLE [Concomitant]
     Active Substance: LANSOPRAZOLE
  9. METHYLPREDNISOLONE [Concomitant]
     Active Substance: METHYLPREDNISOLONE
  10. PROPRANOLOL [Concomitant]
     Active Substance: PROPRANOLOL HYDROCHLORIDE
  11. SUMATRIPTAN [Concomitant]
     Active Substance: SUMATRIPTAN
  12. TOBRADEX [Concomitant]
     Active Substance: DEXAMETHASONE\TOBRAMYCIN
     Dates: start: 20231116, end: 20231130
  13. COTRIMOXAZOLE [Concomitant]
     Active Substance: SULFAMETHOXAZOLE\TRIMETHOPRIM
  14. SULFADIAZINE [Concomitant]
     Active Substance: SULFADIAZINE
     Dates: start: 20231117
  15. LEUCOVORIN [Concomitant]
     Active Substance: LEUCOVORIN\LEUCOVORIN CALCIUM
  16. PYRIMETHAMINE [Concomitant]
     Active Substance: PYRIMETHAMINE
     Dates: start: 20231117
  17. DOXYCYCLINE [Concomitant]
     Active Substance: DOXYCYCLINE
     Indication: Syphilis
     Dates: start: 20231117
  18. INOSINE PRANOBEX [Concomitant]
     Active Substance: INOSINE PRANOBEX
     Route: 048
     Dates: start: 20231124
  19. ENOXAPARIN [Concomitant]
     Active Substance: ENOXAPARIN
     Route: 058
     Dates: start: 20231116, end: 20240107
  20. FOSCARNET [Concomitant]
     Active Substance: FOSCARNET
     Route: 042
     Dates: start: 20231116, end: 20231116
  21. SODIUM CHLORIDE [Concomitant]
     Active Substance: SODIUM CHLORIDE
     Dosage: 5-10ML
     Route: 040
     Dates: start: 20231115, end: 20240107
  22. ACETAMINOPHEN [Concomitant]
     Active Substance: ACETAMINOPHEN
     Dosage: EVERY 4 HOURS
     Route: 048
     Dates: start: 20231119, end: 20231129
  23. ONDANSETRON [Concomitant]
     Active Substance: ONDANSETRON
     Dosage: EVERY 12 HOURS
     Route: 040
     Dates: start: 20231121, end: 20240107
  24. POLYETHYLENE GLYCOLS [Concomitant]
     Active Substance: POLYETHYLENE GLYCOLS
     Dates: start: 20231121, end: 20231121
  25. SENNA [Concomitant]
     Active Substance: SENNA LEAF\SENNOSIDES\SENNOSIDES A AND B
     Dosage: AT NIGHT
     Route: 048
     Dates: start: 20231119, end: 20240107
  26. MORPHINE SULFATE [Concomitant]
     Active Substance: MORPHINE SULFATE
     Route: 058
     Dates: start: 20240104, end: 20240107
  27. LORAZEPAM [Concomitant]
     Active Substance: LORAZEPAM
     Dosage: 1-4MG
     Route: 048
     Dates: start: 20231122, end: 20231126
  28. LEVETIRACETAM [Concomitant]
     Active Substance: LEVETIRACETAM
     Route: 048
     Dates: start: 20231122, end: 20231122
  29. MIRTAZAPINE [Concomitant]
     Active Substance: MIRTAZAPINE
     Dosage: EVERY NIGHT
     Dates: start: 20240104, end: 20240107
  30. ALBUTEROL [Concomitant]
     Active Substance: ALBUTEROL
     Route: 055
     Dates: start: 20240102, end: 20240107
  31. LACOSAMIDE [Concomitant]
     Active Substance: LACOSAMIDE
     Route: 048
     Dates: start: 20240103, end: 20240107
  32. CHOLECALCIFEROL [Concomitant]
     Active Substance: CHOLECALCIFEROL
     Route: 048
     Dates: start: 20231229, end: 20240107
  33. PEGASYS [Concomitant]
     Active Substance: PEGINTERFERON ALFA-2A
     Dates: start: 20231125
  34. FAVIPIRAVIR [Concomitant]
     Active Substance: FAVIPIRAVIR
     Dates: start: 20231123
  35. RIBAVIRIN [Concomitant]
     Active Substance: RIBAVIRIN
     Dates: start: 20231124
  36. OMEPRAZOLE [Concomitant]
     Active Substance: OMEPRAZOLE
  37. CODEINE PHOSPHATE [Concomitant]
     Active Substance: CODEINE PHOSPHATE
  38. PREDNISOLONE [Concomitant]
     Active Substance: PREDNISOLONE

REACTIONS (14)
  - Subacute sclerosing panencephalitis [Fatal]
  - Headache [Not Recovered/Not Resolved]
  - Photopsia [Not Recovered/Not Resolved]
  - Vision blurred [Not Recovered/Not Resolved]
  - Photophobia [Not Recovered/Not Resolved]
  - Scintillating scotoma [Not Recovered/Not Resolved]
  - Hallucination [Not Recovered/Not Resolved]
  - Migraine [Not Recovered/Not Resolved]
  - Brain fog [Not Recovered/Not Resolved]
  - Confusional state [Not Recovered/Not Resolved]
  - Balance disorder [Not Recovered/Not Resolved]
  - Seizure [Not Recovered/Not Resolved]
  - Uveitis [Not Recovered/Not Resolved]
  - Visual field defect [Unknown]

NARRATIVE: CASE EVENT DATE: 20231001
